FAERS Safety Report 12936096 (Version 1)
Quarter: 2016Q4

REPORT INFORMATION
  Report Type: Spontaneous
  Country: US (occurrence: US)
  Receive Date: 20161114
  Receipt Date: 20161114
  Transmission Date: 20170207
  Serious: No
  Sender: FDA-Public Use
  Company Number: US-HORIZON-KRY-0043-2016

PATIENT
  Age: 72 Year
  Sex: Male
  Weight: 103 kg

DRUGS (2)
  1. KRYSTEXXA [Suspect]
     Active Substance: PEGLOTICASE
     Indication: GOUT
     Route: 042
     Dates: start: 201604, end: 201608
  2. COLCHICINE. [Concomitant]
     Active Substance: COLCHICINE
     Indication: GOUT

REACTIONS (2)
  - Blood uric acid increased [Unknown]
  - Gout [Unknown]

NARRATIVE: CASE EVENT DATE: 201606
